FAERS Safety Report 4642991-X (Version None)
Quarter: 2005Q2

REPORT INFORMATION
  Report Type: 
  Country: None (occurrence: None)
  Receive Date: 20050421
  Receipt Date: 20050407
  Transmission Date: 20051028
  Serious: Yes (Death)
  Sender: FDA-Public Use
  Company Number: USA-2005-0019647

PATIENT
  Age: 48 Year
  Sex: Female

DRUGS (8)
  1. MS CONTIN [Suspect]
     Dosage: 20 MG, DAILY, ORAL; 10 MG, DAILY, ORAL
     Route: 048
     Dates: start: 20040427, end: 20040427
  2. LORAZEPAM [Suspect]
     Dosage: 1 MG, DAILY, SUBCUTANEOUS
     Route: 058
     Dates: start: 20040427, end: 20040428
  3. MORPHINE MIST [Suspect]
     Dosage: 5 MG, PM, UNK
     Route: 065
     Dates: start: 20040427, end: 20040428
  4. LACTULOSE [Concomitant]
  5. AMPICILLIN [Concomitant]
  6. NEOMYCIN [Concomitant]
  7. TIMOLOL MALEATE [Concomitant]
  8. PARACETAMOL [Concomitant]

REACTIONS (2)
  - DEPRESSED LEVEL OF CONSCIOUSNESS [None]
  - POST PROCEDURAL COMPLICATION [None]
